FAERS Safety Report 23516140 (Version 1)
Quarter: 2024Q1

REPORT INFORMATION
  Report Type: Spontaneous
  Country: CH (occurrence: CH)
  Receive Date: 20240213
  Receipt Date: 20240213
  Transmission Date: 20240410
  Serious: Yes (Other)
  Sender: FDA-Public Use
  Company Number: CH-GILEAD-2024-0661651

PATIENT
  Age: 33 Year
  Sex: Male

DRUGS (1)
  1. BIKTARVY [Interacting]
     Active Substance: BICTEGRAVIR SODIUM\EMTRICITABINE\TENOFOVIR ALAFENAMIDE FUMARATE
     Indication: HIV infection
     Dosage: UNK
     Route: 065

REACTIONS (4)
  - Histoplasmosis [Unknown]
  - Virologic failure [Unknown]
  - Drug resistance mutation [Unknown]
  - Drug interaction [Unknown]

NARRATIVE: CASE EVENT DATE: 20231001
